FAERS Safety Report 4423281-7 (Version None)
Quarter: 2004Q3

REPORT INFORMATION
  Report Type: 
  Country: None (occurrence: None)
  Receive Date: 20040810
  Receipt Date: 20040810
  Transmission Date: 20050211
  Serious: Yes (Other)
  Sender: FDA-Public Use
  Company Number: None

PATIENT
  Sex: Male
  Weight: 83.9154 kg

DRUGS (1)
  1. PRONTO ONT [Suspect]
     Indication: LICE INFESTATION
     Dosage: 1/3-1/2 OF 6 OZ AEROSOL CAN ONE APPLICATION
     Dates: start: 20040718, end: 20040718

REACTIONS (2)
  - HEADACHE [None]
  - NAUSEA [None]
